FAERS Safety Report 16980304 (Version 2)
Quarter: 2019Q4

REPORT INFORMATION
  Report Type: Spontaneous
  Country: US (occurrence: US)
  Receive Date: 20191031
  Receipt Date: 20191220
  Transmission Date: 20200122
  Serious: Yes (Other)
  Sender: FDA-Public Use
  Company Number: US-PFIZER INC-2019469785

PATIENT
  Age: 63 Year
  Sex: Female

DRUGS (4)
  1. LIPITOR [Suspect]
     Active Substance: ATORVASTATIN CALCIUM
     Indication: HYPOTENSION
  2. ATORVASTATIN CALCIUM. [Suspect]
     Active Substance: ATORVASTATIN CALCIUM
     Indication: BLOOD CHOLESTEROL INCREASED
  3. LIPITOR [Suspect]
     Active Substance: ATORVASTATIN CALCIUM
     Indication: BLOOD CHOLESTEROL INCREASED
     Dosage: 10 MG, 2X/DAY
     Route: 048
     Dates: end: 2014
  4. ATORVASTATIN CALCIUM. [Suspect]
     Active Substance: ATORVASTATIN CALCIUM
     Indication: HYPOTENSION
     Dosage: 10 MG, 2X/DAY
     Route: 048
     Dates: end: 20130622

REACTIONS (3)
  - Cardiac failure congestive [Unknown]
  - Type 2 diabetes mellitus [Unknown]
  - Renal failure [Unknown]

NARRATIVE: CASE EVENT DATE: 20071208
